FAERS Safety Report 10482065 (Version 3)
Quarter: 2014Q4

REPORT INFORMATION
  Report Type: Spontaneous
  Country: US (occurrence: US)
  Receive Date: 20140929
  Receipt Date: 20141014
  Transmission Date: 20150528
  Serious: Yes (Hospitalization, Other)
  Sender: FDA-Public Use
  Company Number: US-PFIZER INC-2014266829

PATIENT
  Age: 60 Year
  Sex: Female
  Weight: 77 kg

DRUGS (4)
  1. ARTIFICIAL TEARS [Concomitant]
     Active Substance: GLYCERIN\HYPROMELLOSES\POLYETHYLENE GLYCOL 400
     Dosage: UNK
  2. LISINOPRIL. [Concomitant]
     Active Substance: LISINOPRIL
     Indication: BLOOD PRESSURE
     Dosage: 10 MG, UNK
     Route: 048
  3. CHANTIX [Suspect]
     Active Substance: VARENICLINE TARTRATE
     Indication: SMOKING CESSATION THERAPY
     Dosage: 0.5 MG, 1X/DAY
     Route: 048
     Dates: start: 20140906, end: 20140926
  4. WARFARIN [Concomitant]
     Active Substance: WARFARIN
     Indication: CEREBRAL THROMBOSIS
     Dosage: 5 MG, UNK
     Route: 048

REACTIONS (5)
  - Sleep disorder [Unknown]
  - Fatigue [Unknown]
  - Depression [Recovering/Resolving]
  - Impaired driving ability [Unknown]
  - Insomnia [Unknown]

NARRATIVE: CASE EVENT DATE: 201409
